FAERS Safety Report 25835920 (Version 1)
Quarter: 2025Q3

REPORT INFORMATION
  Report Type: Spontaneous
  Country: JP (occurrence: JP)
  Receive Date: 20250923
  Receipt Date: 20250923
  Transmission Date: 20251020
  Serious: Yes (Disabling, Other)
  Sender: OTSUKA
  Company Number: JP-MMM-Otsuka-E645GBT2

PATIENT
  Age: 92 Year
  Sex: Female

DRUGS (2)
  1. REXULTI [Suspect]
     Active Substance: BREXPIPRAZOLE
     Indication: Aggression
     Route: 065
     Dates: start: 202412
  2. GALANTAMINE HYDROBROMIDE [Concomitant]
     Active Substance: GALANTAMINE HYDROBROMIDE
     Indication: Product used for unknown indication
     Route: 048

REACTIONS (7)
  - Fracture [Unknown]
  - Muscular weakness [Unknown]
  - Gait disturbance [Unknown]
  - Fall [Unknown]
  - Depression [Unknown]
  - Feeling abnormal [Recovering/Resolving]
  - Product use in unapproved indication [Unknown]
